FAERS Safety Report 5132233-3 (Version None)
Quarter: 2006Q4

REPORT INFORMATION
  Report Type: 
  Country: None (occurrence: None)
  Receive Date: 20061017
  Receipt Date: 20061003
  Transmission Date: 20070319
  Serious: Yes (Hospitalization)
  Sender: FDA-Public Use
  Company Number: 2006-148683-NL

PATIENT
  Age: 67 Year
  Sex: Female

DRUGS (6)
  1. DEXAMETHASONE [Suspect]
     Dosage: 20 MG  ORAL, TWICE
     Route: 048
  2. DEXAMETHASONE [Suspect]
     Dosage: 20 MG INTRAVENOUS (NOS)
     Route: 042
  3. DEXAMETHASONE [Suspect]
     Dosage: 10 MG ORAL, FOR CYCLE 7
     Route: 048
  4. PEGFILGRASTIM [Suspect]
     Dosage: 6 MG DAILY SUBCUTANEOUS, DAY 2 OF CYCLE
     Route: 058
  5. DOXORUBICIN HCL [Concomitant]
  6. CYCLOPHOSPHAMIDE [Concomitant]

REACTIONS (2)
  - DYSPNOEA [None]
  - WHITE BLOOD CELL COUNT INCREASED [None]
